FAERS Safety Report 5622856-7 (Version None)
Quarter: 2008Q1

REPORT INFORMATION
  Report Type: 
  Country: None (occurrence: None)
  Receive Date: 20080212
  Receipt Date: 20080202
  Transmission Date: 20080703
  Serious: Yes (Hospitalization)
  Sender: FDA-Public Use
  Company Number: CA-JNJFOC-20071101628

PATIENT
  Sex: Male
  Weight: 78.93 kg

DRUGS (10)
  1. REMICADE [Suspect]
     Route: 042
  2. REMICADE [Suspect]
     Route: 042
  3. REMICADE [Suspect]
     Route: 042
  4. REMICADE [Suspect]
     Route: 042
  5. REMICADE [Suspect]
     Indication: ANKYLOSING SPONDYLITIS
     Route: 042
  6. BENADRYL [Concomitant]
     Indication: PREMEDICATION
  7. OXYCONTIN [Concomitant]
  8. INDOCIN [Concomitant]
  9. MOBIC [Concomitant]
  10. PREDNISONE TAB [Concomitant]

REACTIONS (2)
  - BACK PAIN [None]
  - THERAPEUTIC RESPONSE DECREASED [None]
